FAERS Safety Report 8077541-1 (Version None)
Quarter: 2012Q1

REPORT INFORMATION
  Report Type: 
  Country: None (occurrence: None)
  Receive Date: 20120127
  Receipt Date: 20120117
  Transmission Date: 20120608
  Serious: Yes (Death, Hospitalization, Other)
  Sender: FDA-Public Use
  Company Number: US-ELI_LILLY_AND_COMPANY-US201101006662

PATIENT
  Sex: Female

DRUGS (3)
  1. FORTEO [Suspect]
     Dosage: 20 UG, QD
  2. FORTEO [Suspect]
     Dosage: 20 UG, QD
     Route: 065
  3. FORTEO [Suspect]
     Indication: OSTEOPOROSIS
     Dosage: 20 UG, QD
     Route: 065
     Dates: start: 20101115

REACTIONS (9)
  - PNEUMONIA BACTERIAL [None]
  - NASOPHARYNGITIS [None]
  - NASAL DISORDER [None]
  - TOOTH ABSCESS [None]
  - DEATH [None]
  - SNEEZING [None]
  - COUGH [None]
  - MALAISE [None]
  - BLINDNESS [None]
